FAERS Safety Report 23161689 (Version 4)
Quarter: 2025Q3

REPORT INFORMATION
  Report Type: Spontaneous
  Country: JP (occurrence: JP)
  Receive Date: 20231108
  Receipt Date: 20250808
  Transmission Date: 20251021
  Serious: Yes (Hospitalization, Other)
  Sender: SANOFI AVENTIS
  Company Number: JP-SA-2023SA341333

PATIENT
  Age: 50 Year
  Sex: Male
  Weight: 72 kg

DRUGS (3)
  1. DUPIXENT [Suspect]
     Active Substance: DUPILUMAB
     Indication: Chronic rhinosinusitis with nasal polyps
     Dosage: 300 MG, QOW
     Route: 058
     Dates: start: 20230622, end: 20230803
  2. BETAMETHASONE SODIUM PHOSPHATE [Concomitant]
     Active Substance: BETAMETHASONE SODIUM PHOSPHATE
     Indication: Chronic rhinosinusitis with nasal polyps
     Route: 045
  3. XYZAL [Concomitant]
     Active Substance: LEVOCETIRIZINE DIHYDROCHLORIDE
     Indication: Rhinitis allergic
     Dosage: 5 MG, QD
     Route: 048
     Dates: start: 20211019

REACTIONS (16)
  - Eosinophilic granulomatosis with polyangiitis [Recovering/Resolving]
  - Nasopharyngitis [Recovering/Resolving]
  - Pyrexia [Recovering/Resolving]
  - Malaise [Recovering/Resolving]
  - Arthralgia [Recovering/Resolving]
  - Chest discomfort [Recovering/Resolving]
  - Lymphadenopathy [Recovering/Resolving]
  - Weight decreased [Recovering/Resolving]
  - Hypoaesthesia [Recovering/Resolving]
  - Mononeuropathy multiplex [Recovering/Resolving]
  - Myalgia [Recovering/Resolving]
  - Vasculitis [Recovering/Resolving]
  - Polyarthritis [Recovering/Resolving]
  - Eosinophilic pneumonia [Recovering/Resolving]
  - Cough [Recovering/Resolving]
  - Dyspnoea [Recovering/Resolving]

NARRATIVE: CASE EVENT DATE: 20230801
